FAERS Safety Report 22606210 (Version 1)
Quarter: 2023Q2

REPORT INFORMATION
  Report Type: Spontaneous
  Country: US (occurrence: None)
  Receive Date: 20230614
  Receipt Date: 20230614
  Transmission Date: 20230722
  Serious: No
  Sender: FDA-Public Use
  Company Number: None

PATIENT
  Age: 46 Year
  Sex: Female
  Weight: 109.9 kg

DRUGS (9)
  1. VERZENIO [Suspect]
     Active Substance: ABEMACICLIB
     Indication: Breast cancer female
     Dosage: FREQUENCY : TWICE A DAY;?
     Route: 048
     Dates: start: 20230514
  2. ANASTROZOLE [Concomitant]
     Active Substance: ANASTROZOLE
  3. GABAPENTIN [Concomitant]
  4. HYDRALAZINE [Concomitant]
  5. LEVOTHYROXINE [Concomitant]
  6. LOSARTAN [Concomitant]
  7. METFORMIN [Concomitant]
  8. METOPROLOL [Concomitant]
  9. VITAMIN D3 [Concomitant]
     Active Substance: CHOLECALCIFEROL

REACTIONS (2)
  - Nausea [None]
  - Arthralgia [None]

NARRATIVE: CASE EVENT DATE: 20230614
